FAERS Safety Report 15485678 (Version 7)
Quarter: 2021Q2

REPORT INFORMATION
  Report Type: Spontaneous
  Country: US (occurrence: US)
  Receive Date: 20181010
  Receipt Date: 20210429
  Transmission Date: 20210716
  Serious: Yes (Death, Hospitalization)
  Sender: FDA-Public Use
  Company Number: US-VIFOR (INTERNATIONAL) INC.-VIT-2018-09717

PATIENT
  Age: 81 Year
  Sex: Female

DRUGS (3)
  1. VELTASSA [Suspect]
     Active Substance: PATIROMER
     Route: 048
     Dates: start: 20190410
  2. VELTASSA [Suspect]
     Active Substance: PATIROMER
     Route: 048
     Dates: start: 20181004
  3. VELTASSA [Suspect]
     Active Substance: PATIROMER
     Indication: HYPERKALAEMIA
     Route: 048
     Dates: start: 20180918, end: 20201206

REACTIONS (8)
  - Death [Fatal]
  - Visual acuity reduced [Not Recovered/Not Resolved]
  - Blood glucose abnormal [Recovered/Resolved]
  - Pain in extremity [Unknown]
  - Drug ineffective [Unknown]
  - Renal failure [Not Recovered/Not Resolved]
  - Abdominal discomfort [Unknown]
  - Off label use [Unknown]

NARRATIVE: CASE EVENT DATE: 20180918
